FAERS Safety Report 21200113 (Version 1)
Quarter: 2022Q3

REPORT INFORMATION
  Report Type: Spontaneous
  Country: US (occurrence: US)
  Receive Date: 20220811
  Receipt Date: 20220811
  Transmission Date: 20221026
  Serious: Yes (Other)
  Sender: FDA-Public Use
  Company Number: US-MYLANLABS-2022M1084251

PATIENT
  Age: 68 Year
  Sex: Female

DRUGS (1)
  1. PREDNISONE [Suspect]
     Active Substance: PREDNISONE
     Indication: Chronic spontaneous urticaria
     Dosage: 60 MILLIGRAM (STARTING DOSE)
     Route: 065

REACTIONS (2)
  - Rebound effect [Recovering/Resolving]
  - Rash [Recovering/Resolving]
